FAERS Safety Report 6626592-X (Version None)
Quarter: 2010Q1

REPORT INFORMATION
  Report Type: 
  Country: None (occurrence: None)
  Receive Date: 20100310
  Receipt Date: 20100303
  Transmission Date: 20100710
  Serious: Yes (Other)
  Sender: FDA-Public Use
  Company Number: ES-MERCK-1002ESP00057

PATIENT
  Age: 63 Year
  Sex: Male
  Weight: 86 kg

DRUGS (13)
  1. FOSAMAX PLUS D [Suspect]
     Indication: OSTEOPOROSIS
     Route: 048
  2. FOSAMAX [Suspect]
     Indication: OSTEOPOROSIS
     Route: 048
     Dates: start: 19960101
  3. ENALAPRIL MALEATE [Concomitant]
     Indication: HYPERTENSION
     Route: 048
     Dates: start: 19960101
  4. PANTOPRAZOLE [Concomitant]
     Indication: DUODENAL ULCER
     Route: 048
     Dates: start: 19980101
  5. AMILORIDE [Concomitant]
     Indication: HYPERTENSION
     Route: 048
     Dates: start: 20050101
  6. ATORVASTATIN [Concomitant]
     Indication: HYPERLIPIDAEMIA
     Route: 048
     Dates: start: 19970101
  7. CYANOCOBALAMIN [Concomitant]
     Route: 048
     Dates: start: 20070101
  8. FOLIC ACID [Concomitant]
     Route: 048
     Dates: start: 20070101
  9. BEZAFIBRATE [Concomitant]
     Indication: HYPERLIPIDAEMIA
     Route: 048
     Dates: start: 19980101
  10. HYDROCHLOROTHIAZIDE [Concomitant]
     Indication: HYPERTENSION
     Route: 048
     Dates: start: 20050101
  11. MELOXICAM [Concomitant]
     Indication: PAIN
     Route: 048
     Dates: start: 20060101
  12. CALCIUM CARBONATE [Concomitant]
     Indication: OSTEOPOROSIS
     Route: 048
     Dates: start: 19960101
  13. FOSAMAX [Suspect]
     Route: 048

REACTIONS (6)
  - ACUTE PULMONARY OEDEMA [None]
  - BENIGN PROSTATIC HYPERPLASIA [None]
  - FOOT FRACTURE [None]
  - OFF LABEL USE [None]
  - RADIOISOTOPE SCAN ABNORMAL [None]
  - SEPTIC SHOCK [None]
